FAERS Safety Report 9296189 (Version 1)
Quarter: 2013Q2

REPORT INFORMATION
  Report Type: Spontaneous
  Country: DE (occurrence: DE)
  Receive Date: 20130517
  Receipt Date: 20130517
  Transmission Date: 20140414
  Serious: Yes (Death)
  Sender: FDA-Public Use
  Company Number: DE-ROXANE LABORATORIES, INC.-2013-RO-00775RO

PATIENT
  Age: 52 Year
  Sex: Female

DRUGS (12)
  1. AMLODIPINE [Suspect]
     Dosage: 2.5 MG
  2. AMLODIPINE [Suspect]
     Dosage: 7.5 MG
  3. AMLODIPINE [Suspect]
     Dosage: 10 MG
  4. DIAZEPAM [Suspect]
  5. IBUPROFEN [Suspect]
  6. DOXEPIN [Suspect]
     Dosage: 25 MG
  7. DOXEPIN [Suspect]
     Dosage: 100 MG
  8. DOXEPIN [Suspect]
     Dosage: 125 MG
  9. PROTHIPENDYL [Suspect]
  10. OLANZAPINE [Suspect]
  11. TILIDINE [Suspect]
  12. METOPROLOL [Suspect]

REACTIONS (1)
  - Toxicity to various agents [Fatal]
